FAERS Safety Report 18197762 (Version 1)
Quarter: 2020Q3

REPORT INFORMATION
  Report Type: Spontaneous
  Country: US (occurrence: US)
  Receive Date: 20200826
  Receipt Date: 20200826
  Transmission Date: 20201103
  Serious: No
  Sender: FDA-Public Use
  Company Number: None

PATIENT

DRUGS (2)
  1. HEPARIN HEPARIN [Suspect]
     Active Substance: HEPARIN SODIUM
     Dosage: STRENGTH: 50,000 USP UNITS/10 ML
  2. SOLU?MEDROL [Suspect]
     Active Substance: METHYLPREDNISOLONE SODIUM SUCCINATE

REACTIONS (1)
  - Product packaging confusion [None]
